FAERS Safety Report 19881786 (Version 1)
Quarter: 2021Q3

REPORT INFORMATION
  Report Type: Spontaneous
  Country: ES (occurrence: GB)
  Receive Date: 20210924
  Receipt Date: 20210924
  Transmission Date: 20211014
  Serious: Yes (Other)
  Sender: FDA-Public Use
  Company Number: GB-BRECKENRIDGE PHARMACEUTICAL, INC.-2118786

PATIENT
  Age: 81 Year
  Sex: Male

DRUGS (8)
  1. PREDNISOLONE. [Concomitant]
     Active Substance: PREDNISOLONE
  2. ACENOCOUMAROL [Concomitant]
     Active Substance: ACENOCOUMAROL
  3. ABIRATERONE. [Suspect]
     Active Substance: ABIRATERONE ACETATE
  4. ATORVASTATIN CALCIUM. [Concomitant]
     Active Substance: ATORVASTATIN CALCIUM
  5. OMEPRAZOLE. [Suspect]
     Active Substance: OMEPRAZOLE
  6. AMLODIPINE [Concomitant]
     Active Substance: AMLODIPINE BESYLATE
  7. LANSOPRAZOLE. [Concomitant]
     Active Substance: LANSOPRAZOLE
  8. LATANOPROST. [Concomitant]
     Active Substance: LATANOPROST

REACTIONS (5)
  - Blood bilirubin increased [Unknown]
  - International normalised ratio increased [Unknown]
  - Blood glucose increased [Unknown]
  - Hypokalaemia [Unknown]
  - Prostate cancer [Unknown]
